FAERS Safety Report 9734905 (Version 2)
Quarter: 2013Q4

REPORT INFORMATION
  Report Type: Spontaneous
  Country: US (occurrence: US)
  Receive Date: 20131206
  Receipt Date: 20131226
  Transmission Date: 20140711
  Serious: No
  Sender: FDA-Public Use
  Company Number: US-PFIZER INC-2013348173

PATIENT
  Sex: Female
  Weight: 70.3 kg

DRUGS (10)
  1. NEURONTIN [Suspect]
     Indication: FIBROMYALGIA
     Dosage: 800 MG, 4X/DAY
     Route: 048
     Dates: end: 2010
  2. PERCOCET [Concomitant]
     Dosage: UNK
  3. SYNTHROID [Concomitant]
     Indication: HYPOTHYROIDISM
     Dosage: UNK
  4. ACYCLOVIR [Concomitant]
     Dosage: 400 MG, 4X/DAY
     Route: 048
  5. CYMBALTA [Concomitant]
     Indication: DEPRESSION
     Dosage: 60 MG, 1X/DAY
     Route: 048
  6. CYMBALTA [Concomitant]
     Indication: MOOD SWINGS
  7. METFORMIN [Concomitant]
     Dosage: 500 MG, 1X/DAY
     Route: 048
  8. XANAX [Concomitant]
     Dosage: 1 MG, 2X/DAY
  9. ESTRADIOL [Concomitant]
     Dosage: 1 MG, 1X/DAY
  10. METOPROLOL [Concomitant]
     Indication: CARDIAC DISORDER
     Dosage: 50 MG (HALF TABLET OF 100MG), 1X/DAY
     Route: 048

REACTIONS (2)
  - Off label use [Unknown]
  - Drug ineffective for unapproved indication [Unknown]
